FAERS Safety Report 5913425-X (Version None)
Quarter: 2008Q4

REPORT INFORMATION
  Report Type: 
  Country: None (occurrence: None)
  Receive Date: 20081009
  Receipt Date: 20081007
  Transmission Date: 20090506
  Serious: Yes (Hospitalization)
  Sender: FDA-Public Use
  Company Number: IT-BRISTOL-MYERS SQUIBB COMPANY-14358766

PATIENT
  Age: 83 Year
  Sex: Male

DRUGS (9)
  1. APROVEL [Suspect]
     Indication: MYOCARDIAL ISCHAEMIA
     Dosage: THERAPY DURATION=5 WKS 1 DAY
     Route: 048
     Dates: start: 20080726, end: 20080830
  2. LASIX [Suspect]
     Indication: MYOCARDIAL ISCHAEMIA
     Dosage: TAB. 2 UNIT OD. 5 WKS 1 DAY
     Route: 048
     Dates: start: 20080726
  3. LASITONE [Suspect]
     Indication: MYOCARDIAL ISCHAEMIA
     Dosage: CAPSULE. 1 DOSAGE FORM=1 UNIT=25MG/37MG PER DAY. 4 WKS 2 DAY
     Route: 048
     Dates: start: 20080801
  4. CARDURA [Suspect]
     Indication: MYOCARDIAL ISCHAEMIA
     Dosage: TAB. 1 UNIT. 5 WKS 1 DAY
     Route: 048
     Dates: start: 20080726, end: 20080830
  5. MINITRANS PATCH [Suspect]
     Indication: MYOCARDIAL ISCHAEMIA
     Dosage: 1 UNIT. 5 WKS 1 DAY
     Route: 062
     Dates: start: 20080726
  6. CONGESCOR [Suspect]
     Indication: MYOCARDIAL ISCHAEMIA
     Dosage: TAB. 5 WKS 1 DAY
     Route: 048
     Dates: start: 20080726
  7. SEROXAT [Suspect]
     Indication: DEPRESSION
     Dosage: SEROXAT TABS 20MG. 4 WKS 2 DAY
     Route: 048
     Dates: start: 20080801, end: 20080830
  8. ATARAX [Suspect]
     Indication: DEPRESSION
     Dosage: 1 DOSAGEFORM = 1 UNIT. 4 WKS 2 DAYS
     Route: 048
     Dates: start: 20080801, end: 20080830
  9. CARDIRENE [Concomitant]
     Indication: PROPHYLAXIS
     Dosage: 1 DOSAGEFORM = 1 UNIT 160MG/DAY
     Route: 048
     Dates: start: 20080726

REACTIONS (3)
  - HYPOTENSION [None]
  - RENAL IMPAIRMENT [None]
  - URINARY RETENTION [None]
